FAERS Safety Report 5933690-2 (Version None)
Quarter: 2008Q4

REPORT INFORMATION
  Report Type: 
  Country: None (occurrence: None)
  Receive Date: 20081029
  Receipt Date: 20081028
  Transmission Date: 20090506
  Serious: Yes (Life-Threatening, Hospitalization, Other)
  Sender: FDA-Public Use
  Company Number: HK-SANOFI-SYNTHELABO-F01200801582

PATIENT
  Sex: Female

DRUGS (6)
  1. NAPROSYN [Concomitant]
     Dosage: UNK
     Dates: start: 20081006, end: 20081009
  2. PEPCIDINE [Concomitant]
     Dosage: UNK
     Dates: start: 20081006, end: 20081010
  3. DOLOGESIC [Concomitant]
     Dosage: UNK
     Dates: start: 20081006, end: 20081009
  4. PYRIDOXINE HCL [Concomitant]
     Dosage: UNK
     Dates: start: 20081006, end: 20081009
  5. OXALIPLATIN [Suspect]
     Indication: NASOPHARYNGEAL CANCER
     Route: 041
     Dates: start: 20080929, end: 20080929
  6. CAPECITABINE [Suspect]
     Dosage: 1000 MG/M2 TWICE A DAY FOR 14 DAYS THEN 7 DAYS REST
     Route: 048
     Dates: start: 20080929

REACTIONS (3)
  - DUODENAL ULCER [None]
  - GASTRIC ULCER [None]
  - PANCYTOPENIA [None]
